FAERS Safety Report 7002807-3 (Version None)
Quarter: 2010Q3

REPORT INFORMATION
  Report Type: 
  Country: None (occurrence: None)
  Receive Date: 20100920
  Receipt Date: 20100914
  Transmission Date: 20110219
  Serious: Yes (Hospitalization)
  Sender: FDA-Public Use
  Company Number: CHPA2010US14720

PATIENT
  Age: 30 Year
  Sex: Female
  Weight: 58.957 kg

DRUGS (2)
  1. EXCEDRIN ES BACK + BODY (NCH) [Suspect]
     Indication: MUSCULOSKELETAL PAIN
     Dosage: UNK, UNK
     Route: 048
     Dates: start: 20090101, end: 20090101
  2. EXCEDRIN ES BACK + BODY (NCH) [Suspect]
     Indication: BACK PAIN
     Dosage: 1 DF, ONCE/SINGLE
     Route: 048
     Dates: start: 20091224, end: 20091224

REACTIONS (1)
  - URTICARIA [None]
